FAERS Safety Report 16995758 (Version 2)
Quarter: 2019Q4

REPORT INFORMATION
  Report Type: Spontaneous
  Country: US (occurrence: US)
  Receive Date: 20191105
  Receipt Date: 20191107
  Transmission Date: 20200122
  Serious: No
  Sender: FDA-Public Use
  Company Number: US-009507513-1704USA011065

PATIENT
  Sex: Male
  Weight: 87.6 kg

DRUGS (2)
  1. ZOSTAVAX [Suspect]
     Active Substance: VARICELLA-ZOSTER VIRUS STRAIN OKA/MERCK LIVE ANTIGEN
     Indication: PROPHYLAXIS
     Route: 058
     Dates: start: 20131104, end: 20131104
  2. STERILE DILUENT (WATER) [Suspect]
     Active Substance: WATER
     Indication: PROPHYLAXIS
     Dosage: RIGHT ARM
     Route: 058
     Dates: start: 20131104

REACTIONS (4)
  - Herpes zoster [Not Recovered/Not Resolved]
  - Herpes zoster [Not Recovered/Not Resolved]
  - Neuralgia [Not Recovered/Not Resolved]
  - Vaccination failure [Not Recovered/Not Resolved]

NARRATIVE: CASE EVENT DATE: 20160125
